FAERS Safety Report 7849860-2 (Version None)
Quarter: 2011Q4

REPORT INFORMATION
  Report Type: 
  Country: None (occurrence: None)
  Receive Date: 20111025
  Receipt Date: 20111025
  Transmission Date: 20120403
  Serious: Yes (Hospitalization)
  Sender: FDA-Public Use
  Company Number: None

PATIENT
  Sex: Female
  Weight: 63.5 kg

DRUGS (1)
  1. GEMCITABINE HYDROCHLORIDE [Suspect]
     Dosage: 3974.5 MG
     Dates: end: 20111018

REACTIONS (1)
  - SEPSIS [None]
